FAERS Safety Report 14149915 (Version 1)
Quarter: 2017Q4

REPORT INFORMATION
  Report Type: Spontaneous
  Country: IT (occurrence: IT)
  Receive Date: 20171101
  Receipt Date: 20171101
  Transmission Date: 20180321
  Serious: Yes (Other)
  Sender: FDA-Public Use
  Company Number: IT-PURDUE PHARMA-GBR-2017-0050180

PATIENT

DRUGS (2)
  1. LYRICA [Suspect]
     Active Substance: PREGABALIN
     Indication: NEURALGIA
     Dosage: ]1 DF, PRN [STRENGTH 25MG]
     Route: 048
     Dates: start: 20171018, end: 20171022
  2. TARGIN [Suspect]
     Active Substance: NALOXONE HYDROCHLORIDE\OXYCODONE HYDROCHLORIDE
     Indication: PAIN
     Dosage: 1 DF, PRN [STRENGTH 5 MG/2.5 MG]
     Route: 048
     Dates: start: 20171018, end: 20171022

REACTIONS (2)
  - Angioedema [Recovering/Resolving]
  - Facial paralysis [Recovering/Resolving]

NARRATIVE: CASE EVENT DATE: 20171022
